FAERS Safety Report 5477684-2 (Version None)
Quarter: 2007Q4

REPORT INFORMATION
  Report Type: 
  Country: None (occurrence: None)
  Receive Date: 20071003
  Receipt Date: 20071003
  Transmission Date: 20080405
  Serious: Yes (Hospitalization)
  Sender: FDA-Public Use
  Company Number: None

PATIENT
  Age: 77 Year
  Sex: Male

DRUGS (2)
  1. HYDRALAZINE HCL [Suspect]
     Indication: HYPERTENSION
     Dosage: 75MG  TID  PO
     Route: 048
     Dates: start: 20060125
  2. TERAZOSIN HCL [Suspect]
     Dosage: 2MG  HS  PO
     Route: 048
     Dates: start: 19981008, end: 20070921

REACTIONS (1)
  - SYNCOPE [None]
